FAERS Safety Report 8861919 (Version 1)
Quarter: 2012Q4

REPORT INFORMATION
  Report Type: Spontaneous
  Country: US (occurrence: None)
  Receive Date: 20121023
  Receipt Date: 20121023
  Transmission Date: 20130627
  Serious: Yes (Hospitalization)
  Sender: FDA-Public Use
  Company Number: D-12-048

PATIENT
  Age: 86 Year
  Sex: Female
  Weight: 81.65 kg

DRUGS (2)
  1. IPRATROPIUM BROMIDE/ALBUTEROL SULFATE [Suspect]
     Dosage: 1 vial Q6H 54
     Dates: start: 20120930, end: 20121018
  2. IPRATROPIUM BROMIDE/ALBUTEROL SULFATE [Suspect]
     Dosage: 1 vial Q6H 54
     Dates: start: 20120930, end: 20121018

REACTIONS (3)
  - Dyspnoea [None]
  - Wheezing [None]
  - Respiratory distress [None]
